FAERS Safety Report 5501716-6 (Version None)
Quarter: 2007Q4

REPORT INFORMATION
  Report Type: 
  Country: None (occurrence: None)
  Receive Date: 20071030
  Receipt Date: 20071017
  Transmission Date: 20080405
  Serious: Yes (Hospitalization, Other)
  Sender: FDA-Public Use
  Company Number: US-AMGEN-STX243181

PATIENT
  Sex: Female

DRUGS (2)
  1. ENBREL [Suspect]
     Indication: RHEUMATOID ARTHRITIS
     Route: 058
     Dates: start: 20011126
  2. ARAVA [Concomitant]
     Route: 048

REACTIONS (17)
  - BURSITIS [None]
  - CERVICOBRACHIAL SYNDROME [None]
  - CLAVICLE FRACTURE [None]
  - DEEP VEIN THROMBOSIS [None]
  - EYE SWELLING [None]
  - FLUID RETENTION [None]
  - HEADACHE [None]
  - HYPOAESTHESIA [None]
  - LORDOSIS [None]
  - OSTEOARTHRITIS [None]
  - PAIN IN EXTREMITY [None]
  - PYREXIA [None]
  - RHEUMATOID ARTHRITIS [None]
  - ROTATOR CUFF SYNDROME [None]
  - SCOLIOSIS [None]
  - SPINAL OPERATION [None]
  - SPINAL OSTEOARTHRITIS [None]
